FAERS Safety Report 24789781 (Version 1)
Quarter: 2024Q4

REPORT INFORMATION
  Report Type: Report from Study
  Country: CN (occurrence: CN)
  Receive Date: 20241230
  Receipt Date: 20241230
  Transmission Date: 20250115
  Serious: Yes (Other)
  Sender: GILEAD
  Company Number: CN-GILEAD-2024-0697735

PATIENT
  Age: 58 Year
  Sex: Female

DRUGS (4)
  1. SACITUZUMAB GOVITECAN-HZIY [Suspect]
     Active Substance: SACITUZUMAB GOVITECAN-HZIY
     Indication: Breast cancer
     Dosage: 540 MG,D1, 8
     Route: 041
     Dates: start: 20241120, end: 20241128
  2. SACITUZUMAB GOVITECAN-HZIY [Suspect]
     Active Substance: SACITUZUMAB GOVITECAN-HZIY
     Dosage: 360 MG,C2, D1, 8
     Route: 041
     Dates: start: 20241209, end: 20241217
  3. BEVACIZUMAB [Concomitant]
     Active Substance: BEVACIZUMAB
     Indication: Breast cancer
     Dosage: 500 MG, Q3WK
     Route: 065
     Dates: start: 20241120
  4. BEVACIZUMAB [Concomitant]
     Active Substance: BEVACIZUMAB
     Dosage: 500 MG, Q3WK
     Route: 065
     Dates: start: 20241209, end: 20241217

REACTIONS (11)
  - Myelosuppression [Unknown]
  - Hypokalaemia [Unknown]
  - Gastrointestinal haemorrhage [Unknown]
  - Myocardial necrosis marker increased [Unknown]
  - Hepatic failure [Unknown]
  - Neutrophil count decreased [Unknown]
  - Platelet count decreased [Unknown]
  - White blood cell count decreased [Unknown]
  - Intra-abdominal fluid collection [Unknown]
  - Hypoproteinaemia [Unknown]
  - Anaemia [Unknown]

NARRATIVE: CASE EVENT DATE: 20240101
